FAERS Safety Report 11098994 (Version 2)
Quarter: 2015Q2

REPORT INFORMATION
  Report Type: Spontaneous
  Country: CH (occurrence: CH)
  Receive Date: 20150508
  Receipt Date: 20150513
  Transmission Date: 20150821
  Serious: Yes (Hospitalization)
  Sender: FDA-Public Use
  Company Number: CH-ASTRAZENECA-2015SE42497

PATIENT
  Age: 78 Year
  Sex: Female
  Weight: 70.5 kg

DRUGS (4)
  1. TEMESTA [Interacting]
     Active Substance: LORAZEPAM
     Route: 048
  2. PANTOZOL [Concomitant]
     Active Substance: PANTOPRAZOLE SODIUM
     Route: 048
  3. TRITTICO [Concomitant]
     Active Substance: TRAZODONE HYDROCHLORIDE
     Route: 048
  4. ATACAND PLUS [Suspect]
     Active Substance: CANDESARTAN CILEXETIL\HYDROCHLOROTHIAZIDE
     Dosage: 16/12.5 MG, ONE TABLET DAILY
     Route: 048
     Dates: end: 20150305

REACTIONS (7)
  - Decreased appetite [Unknown]
  - Dry mouth [Unknown]
  - Drug interaction [Unknown]
  - Syncope [Recovered/Resolved]
  - Orthostatic hypotension [Recovered/Resolved]
  - Asthenia [Unknown]
  - Atrial fibrillation [Unknown]

NARRATIVE: CASE EVENT DATE: 2015
